FAERS Safety Report 9792069 (Version 2)
Quarter: 2014Q1

REPORT INFORMATION
  Report Type: Spontaneous
  Country: CO (occurrence: CO)
  Receive Date: 20140102
  Receipt Date: 20140121
  Transmission Date: 20141002
  Serious: Yes (Other)
  Sender: FDA-Public Use
  Company Number: CO-UCBSA-107736

PATIENT
  Age: 51 Year
  Sex: Male

DRUGS (2)
  1. LEVETIRACETAM [Suspect]
     Indication: CONVULSION
     Dosage: UNKNOWN DOSE
  2. EPAMIN [Concomitant]
     Dosage: UNKNOWN DOSE (TREATED FROM MORE THAN 10 YEARS)

REACTIONS (4)
  - Aplastic anaemia [Recovering/Resolving]
  - Weight decreased [Recovering/Resolving]
  - Diarrhoea [Recovering/Resolving]
  - Abdominal discomfort [Recovering/Resolving]
